FAERS Safety Report 6248680-2 (Version None)
Quarter: 2009Q2

REPORT INFORMATION
  Report Type: 
  Country: None (occurrence: None)
  Receive Date: 20090624
  Receipt Date: 20090624
  Transmission Date: 20091009
  Serious: No
  Sender: FDA-Public Use
  Company Number: None

PATIENT
  Age: 36 Year
  Sex: Male
  Weight: 74 kg

DRUGS (5)
  1. INSULIN ASPART [Suspect]
     Indication: TYPE 1 DIABETES MELLITUS
     Dosage: SSI-H QID PRN SQ
     Route: 058
     Dates: start: 20090522, end: 20090524
  2. HUMULIN 70/30 [Suspect]
     Indication: TYPE 1 DIABETES MELLITUS
     Dosage: 10 UNITS SQ X 1
     Route: 058
     Dates: start: 20090523
  3. AMLODIPINE [Concomitant]
  4. HYDROMORPHONE [Concomitant]
  5. LANSOPRAZOLE [Concomitant]

REACTIONS (6)
  - ASTHENIA [None]
  - BLOOD GLUCOSE DECREASED [None]
  - BLOOD GLUCOSE INCREASED [None]
  - HYPERHIDROSIS [None]
  - NAUSEA [None]
  - TREMOR [None]
